FAERS Safety Report 20578225 (Version 1)
Quarter: 2022Q1

REPORT INFORMATION
  Report Type: Spontaneous
  Country: US (occurrence: US)
  Receive Date: 20220310
  Receipt Date: 20220310
  Transmission Date: 20220424
  Serious: No
  Sender: FDA-Public Use
  Company Number: US-TERSERA THERAPEUTICS LLC-2021TRS003397

PATIENT

DRUGS (4)
  1. XERMELO [Suspect]
     Active Substance: TELOTRISTAT ETHYL
     Indication: Carcinoid tumour of the gastrointestinal tract
     Dosage: 250 MG, TID PRN WITH MEALS
     Route: 065
     Dates: start: 20210623
  2. XERMELO [Suspect]
     Active Substance: TELOTRISTAT ETHYL
     Indication: Carcinoid syndrome
  3. XERMELO [Suspect]
     Active Substance: TELOTRISTAT ETHYL
     Indication: Pruritus
  4. SANDOSTATIN LAR DEPOT [Concomitant]
     Active Substance: OCTREOTIDE ACETATE
     Indication: Product used for unknown indication
     Dosage: 30 MG, Q28 DAYS
     Route: 065

REACTIONS (2)
  - Dizziness [Unknown]
  - Off label use [Unknown]
